FAERS Safety Report 5145376-5 (Version None)
Quarter: 2006Q4

REPORT INFORMATION
  Report Type: 
  Country: None (occurrence: None)
  Receive Date: 20061101
  Receipt Date: 20061018
  Transmission Date: 20070319
  Serious: Yes (Life-Threatening)
  Sender: FDA-Public Use
  Company Number: 056-C5013-06090090

PATIENT
  Age: 78 Year
  Sex: Female
  Weight: 52 kg

DRUGS (11)
  1. REVLIMID [Suspect]
     Indication: MYELODYSPLASTIC SYNDROME
     Dosage: 5 MG, 1 IN 1 D, ORAL
     Route: 048
     Dates: start: 20060519, end: 20060606
  2. EFFEXOR [Concomitant]
  3. DAFALGAN          (PARACETAMOL) [Concomitant]
  4. TOPALGIC                   (TRAMADOL) [Concomitant]
  5. DESFERAL                 (DEFEROXAMINE MESILATE) [Concomitant]
  6. NEUPOGEN [Concomitant]
  7. TRANXENE [Concomitant]
  8. RHYTHMOL                (PROPAFENONE) [Concomitant]
  9. IMOVANE         (ZOPICLONE) [Concomitant]
  10. MOTILIUM [Concomitant]
  11. TRANSIPEG               (MACROGOL) [Concomitant]

REACTIONS (3)
  - BONE MARROW FAILURE [None]
  - HISTIOCYTOSIS HAEMATOPHAGIC [None]
  - THROMBOCYTOPENIA [None]
